FAERS Safety Report 5634102-9 (Version None)
Quarter: 2008Q1

REPORT INFORMATION
  Report Type: 
  Country: None (occurrence: None)
  Receive Date: 20080131
  Receipt Date: 20071112
  Transmission Date: 20080703
  Serious: Yes (Hospitalization, Other)
  Sender: FDA-Public Use
  Company Number: 158094USA

PATIENT
  Age: 46 Year
  Sex: Female

DRUGS (12)
  1. COPAXONE [Suspect]
     Indication: MULTIPLE SCLEROSIS
     Dosage: 20 MG (20 MG,1 IN 1 D),SUBCUTANEOUS
     Route: 058
     Dates: start: 20030903
  2. AMITRIPTYLINE HYDROCHLORIDE [Concomitant]
  3. WARFARIN SODIUM [Concomitant]
  4. CARVEDILOL [Concomitant]
  5. EPLERENONE [Concomitant]
  6. RAMIPRIL [Concomitant]
  7. VANCOMYCIN HYDROCHLORIDE [Concomitant]
  8. MULTI-VITAMIN [Concomitant]
  9. IRON [Concomitant]
  10. FOLIC ACID [Concomitant]
  11. TIZANIDINE HYDROCHLORIDE [Concomitant]
  12. ESCITALOPRAM OXALATE [Concomitant]

REACTIONS (2)
  - CARDIAC FAILURE CONGESTIVE [None]
  - CARDIOMYOPATHY [None]
